FAERS Safety Report 22330548 (Version 1)
Quarter: 2023Q2

REPORT INFORMATION
  Report Type: Spontaneous
  Country: US (occurrence: None)
  Receive Date: 20230517
  Receipt Date: 20230517
  Transmission Date: 20230721
  Serious: No
  Sender: FDA-Public Use
  Company Number: US-ROCHE-3086763

PATIENT
  Sex: Female

DRUGS (6)
  1. ACTEMRA [Suspect]
     Active Substance: TOCILIZUMAB
     Indication: Diverticulum intestinal
     Dosage: (STRENGTH: 162MG/0.9M)
     Route: 058
     Dates: start: 20221229
  2. ACTEMRA [Suspect]
     Active Substance: TOCILIZUMAB
  3. ACTEMRA [Suspect]
     Active Substance: TOCILIZUMAB
  4. ACTEMRA [Suspect]
     Active Substance: TOCILIZUMAB
     Indication: Fibromyalgia
  5. ACTEMRA [Suspect]
     Active Substance: TOCILIZUMAB
  6. ACTEMRA [Suspect]
     Active Substance: TOCILIZUMAB

REACTIONS (7)
  - Myalgia [Unknown]
  - Off label use [Unknown]
  - Paraesthesia [Unknown]
  - Hypoaesthesia [Unknown]
  - Pain in extremity [Unknown]
  - Arthralgia [Unknown]
  - Fine motor skill dysfunction [Unknown]
